FAERS Safety Report 12679085 (Version 3)
Quarter: 2016Q4

REPORT INFORMATION
  Report Type: Spontaneous
  Country: US (occurrence: US)
  Receive Date: 20160824
  Receipt Date: 20161021
  Transmission Date: 20170207
  Serious: Yes (Other)
  Sender: FDA-Public Use
  Company Number: US-SHIRE-US201610673

PATIENT
  Age: 43 Year
  Sex: Female

DRUGS (2)
  1. KALBITOR [Suspect]
     Active Substance: ECALLANTIDE
     Indication: IMMUNODEFICIENCY COMMON VARIABLE
     Dosage: 30 MG, AS REQ^D
     Route: 058
     Dates: start: 20131201, end: 20160815
  2. KALBITOR [Suspect]
     Active Substance: ECALLANTIDE
     Indication: HEREDITARY ANGIOEDEMA

REACTIONS (6)
  - Cyanosis [Recovered/Resolved]
  - Pruritus [Unknown]
  - Swelling [Recovered/Resolved]
  - Swollen tongue [Recovered/Resolved]
  - Feeling abnormal [Recovered/Resolved]
  - Hypersensitivity [Recovered/Resolved]

NARRATIVE: CASE EVENT DATE: 20160812
